FAERS Safety Report 11872094 (Version 3)
Quarter: 2016Q1

REPORT INFORMATION
  Report Type: Spontaneous
  Country: NO (occurrence: NO)
  Receive Date: 20151228
  Receipt Date: 20160129
  Transmission Date: 20160526
  Serious: Yes (Disabling, Other)
  Sender: FDA-Public Use
  Company Number: NO-SA-2015SA215731

PATIENT
  Age: 66 Year
  Sex: Female

DRUGS (10)
  1. VIVAL [Concomitant]
     Active Substance: DIAZEPAM
     Indication: ANXIETY
     Route: 048
  2. FRAGMIN [Concomitant]
     Active Substance: DALTEPARIN SODIUM
     Indication: CEREBRAL INFARCTION
     Dosage: 5000 IE X 2
     Route: 058
     Dates: start: 201308
  3. ADALAT [Concomitant]
     Active Substance: NIFEDIPINE
     Indication: HYPERTENSION
     Route: 048
  4. LIPITOR [Suspect]
     Active Substance: ATORVASTATIN CALCIUM
     Indication: HYPERCHOLESTEROLAEMIA
     Route: 048
     Dates: start: 20130826, end: 20131124
  5. DIOVAN [Concomitant]
     Active Substance: VALSARTAN
     Indication: HYPERTENSION
     Dosage: 12.5/320 MG, 1X/DAY
     Route: 048
  6. PARACET [Concomitant]
     Active Substance: ACETAMINOPHEN
     Route: 048
  7. LIPITOR [Suspect]
     Active Substance: ATORVASTATIN CALCIUM
     Indication: HYPERCHOLESTEROLAEMIA
     Route: 048
     Dates: start: 20131125, end: 20150813
  8. PLAVIX [Suspect]
     Active Substance: CLOPIDOGREL BISULFATE
     Indication: CEREBRAL INFARCTION
     Route: 048
     Dates: start: 20130826, end: 20150813
  9. PERSANTINE [Concomitant]
     Active Substance: DIPYRIDAMOLE
     Dates: end: 20130821
  10. IMOVANE [Concomitant]
     Active Substance: ZOPICLONE
     Route: 048

REACTIONS (7)
  - Pain in extremity [Recovering/Resolving]
  - Pain [Recovering/Resolving]
  - Skin disorder [Recovering/Resolving]
  - Eczema [Recovering/Resolving]
  - Pain [Recovered/Resolved]
  - Impaired quality of life [Recovering/Resolving]
  - Rash pruritic [Recovering/Resolving]

NARRATIVE: CASE EVENT DATE: 20140301
